FAERS Safety Report 18582390 (Version 1)
Quarter: 2020Q4

REPORT INFORMATION
  Report Type: Spontaneous
  Country: PT (occurrence: PT)
  Receive Date: 20201205
  Receipt Date: 20201205
  Transmission Date: 20210114
  Serious: Yes (Hospitalization, Other)
  Sender: FDA-Public Use
  Company Number: PT-AUROBINDO-AUR-APL-2020-051047

PATIENT
  Age: 75 Year
  Sex: Female

DRUGS (2)
  1. VALGANCICLOVIR. [Suspect]
     Active Substance: VALGANCICLOVIR
     Indication: CYTOMEGALOVIRUS COLITIS
     Dosage: UNK
     Route: 065
  2. VALGANCICLOVIR. [Suspect]
     Active Substance: VALGANCICLOVIR
     Indication: CYTOMEGALOVIRUS INFECTION

REACTIONS (6)
  - Pyrexia [Unknown]
  - Pancytopenia [Recovering/Resolving]
  - Intentional product use issue [Unknown]
  - Off label use [Unknown]
  - Diarrhoea [Unknown]
  - Altered state of consciousness [Unknown]
